FAERS Safety Report 12680619 (Version 1)
Quarter: 2016Q3

REPORT INFORMATION
  Report Type: Spontaneous
  Country: JP (occurrence: JP)
  Receive Date: 20160824
  Receipt Date: 20160824
  Transmission Date: 20161109
  Serious: Yes (Other)
  Sender: FDA-Public Use
  Company Number: JP-PFIZER INC-2016393048

PATIENT
  Age: 38 Year
  Sex: Male

DRUGS (1)
  1. CABASER 0.25MG [Suspect]
     Active Substance: CABERGOLINE
     Indication: HYPERPROLACTINAEMIA
     Dosage: 0.25 MG, DAILY
     Route: 048

REACTIONS (3)
  - Neoplasm [Unknown]
  - Cerebrospinal fluid leakage [Unknown]
  - Libido decreased [Unknown]

NARRATIVE: CASE EVENT DATE: 201301
